FAERS Safety Report 5415408-5 (Version None)
Quarter: 2007Q3

REPORT INFORMATION
  Report Type: 
  Country: None (occurrence: None)
  Receive Date: 20070813
  Receipt Date: 20070813
  Transmission Date: 20080115
  Serious: Yes (Hospitalization, Other)
  Sender: FDA-Public Use
  Company Number: None

PATIENT
  Age: 59 Year
  Sex: Male

DRUGS (2)
  1. TRAZODONE HCL [Suspect]
     Dates: end: 20070329
  2. FLUVOXAMINE MALEATE [Suspect]
     Dates: end: 20070329

REACTIONS (2)
  - METABOLIC ACIDOSIS [None]
  - SEROTONIN SYNDROME [None]
